FAERS Safety Report 13562383 (Version 3)
Quarter: 2017Q4

REPORT INFORMATION
  Report Type: Report from Study
  Country: None (occurrence: US)
  Receive Date: 20170519
  Receipt Date: 20171103
  Transmission Date: 20180320
  Serious: Yes (Other)
  Sender: FDA-Public Use
  Company Number: US-ABBVIE-17K-163-1979015-00

PATIENT
  Sex: Female

DRUGS (1)
  1. HUMIRA [Suspect]
     Active Substance: ADALIMUMAB
     Indication: CROHN^S DISEASE
     Route: 058

REACTIONS (8)
  - Exostosis [Not Recovered/Not Resolved]
  - Weight increased [Recovering/Resolving]
  - Back pain [Unknown]
  - Arthralgia [Unknown]
  - Osteoporosis [Not Recovered/Not Resolved]
  - Pain in extremity [Unknown]
  - Calcinosis [Unknown]
  - Blood glucose increased [Unknown]

NARRATIVE: CASE EVENT DATE: 2017
